FAERS Safety Report 25590238 (Version 1)
Quarter: 2025Q3

REPORT INFORMATION
  Report Type: Spontaneous
  Country: US (occurrence: None)
  Receive Date: 20250721
  Receipt Date: 20250721
  Transmission Date: 20251020
  Serious: Yes (Other)
  Sender: FDA-CTU
  Company Number: None

PATIENT
  Age: 17 Year
  Sex: Female
  Weight: 67.5 kg

DRUGS (1)
  1. TWIRLA [Suspect]
     Active Substance: ETHINYL ESTRADIOL\LEVONORGESTREL
     Route: 062
     Dates: start: 20250608, end: 20250714

REACTIONS (13)
  - Application site reaction [None]
  - Application site rash [None]
  - Application site erythema [None]
  - Intermenstrual bleeding [None]
  - Abdominal distension [None]
  - Decreased appetite [None]
  - Mood altered [None]
  - Fatigue [None]
  - Emotional disorder [None]
  - Depression [None]
  - Suicidal ideation [None]
  - Suicidal ideation [None]
  - Therapy cessation [None]

NARRATIVE: CASE EVENT DATE: 20250710
